FAERS Safety Report 6042330-6 (Version None)
Quarter: 2009Q1

REPORT INFORMATION
  Report Type: 
  Country: None (occurrence: None)
  Receive Date: 20090116
  Receipt Date: 20090106
  Transmission Date: 20090719
  Serious: Yes (Other)
  Sender: FDA-Public Use
  Company Number: CA-JNJFOC-20090100913

PATIENT
  Age: 36 Year
  Sex: Male
  Weight: 105 kg

DRUGS (8)
  1. REMICADE [Suspect]
     Dosage: INFUSION 27
     Route: 042
  2. REMICADE [Suspect]
     Dosage: INFUSION 19 TO 26 ADMINISTERED ON UNKNOWN DATES
     Route: 042
  3. REMICADE [Suspect]
     Dosage: INFUSION 18 ADMINISTERED ON UNKNOWN DATE
     Route: 042
  4. REMICADE [Suspect]
     Indication: CROHN'S DISEASE
     Dosage: 17 INFUSIONS ADMINISTERED ON UNKNOWN DATES
     Route: 042
  5. TYLENOL (CAPLET) [Concomitant]
     Indication: PREMEDICATION
     Route: 048
  6. GRAVOL TAB [Concomitant]
     Indication: PREMEDICATION
     Route: 042
  7. BENADRYL [Concomitant]
     Indication: PREMEDICATION
     Route: 042
  8. SOLU-CORTEF [Concomitant]
     Indication: PREMEDICATION
     Route: 042

REACTIONS (4)
  - BLOOD PRESSURE DECREASED [None]
  - FLUSHING [None]
  - INFUSION RELATED REACTION [None]
  - VOMITING [None]
